FAERS Safety Report 8580775 (Version 2)
Quarter: 2012Q4

REPORT INFORMATION
  Report Type: Report from Study
  Country: US (occurrence: US)
  Receive Date: 20120525
  Receipt Date: 20121030
  Transmission Date: 20130627
  Serious: Yes (Hospitalization)
  Sender: FDA-Public Use
  Company Number: US-ROCHE-1069214

PATIENT
  Age: 70 Year
  Sex: Male

DRUGS (14)
  1. PEG-INTERFERON ALFA 2A [Suspect]
     Indication: HEPATITIS C
     Route: 058
     Dates: start: 20120124
  2. RIBAVIRIN [Suspect]
     Indication: HEPATITIS C
     Route: 048
     Dates: start: 20120124
  3. DACLATASVIR [Suspect]
     Indication: HEPATITIS C
     Route: 048
  4. ATAZANAVIR [Concomitant]
     Route: 065
     Dates: start: 20111221, end: 20120402
  5. RITONAVIR [Concomitant]
     Route: 065
     Dates: start: 20111221, end: 20120402
  6. TRUVADA [Concomitant]
     Route: 065
     Dates: start: 20051027, end: 20120402
  7. LORAZEPAM [Concomitant]
     Route: 065
     Dates: start: 20120207
  8. LOPERAMIDE HCL [Concomitant]
     Route: 065
     Dates: start: 20120221
  9. ERYTHROPOIETIN [Concomitant]
     Route: 065
     Dates: start: 20120224
  10. VITAMIN D [Concomitant]
     Route: 065
     Dates: start: 20110114
  11. TRIAMCINOLONE [Concomitant]
     Route: 065
     Dates: start: 20120306
  12. NABUMETONE [Concomitant]
     Route: 065
     Dates: start: 20110114
  13. LEVOTHYROXINE [Concomitant]
     Route: 065
     Dates: start: 20090218
  14. PRAVASTATINE [Concomitant]
     Route: 065
     Dates: start: 20070818

REACTIONS (2)
  - Pancreatitis acute [Unknown]
  - Cholecystitis [Unknown]
